FAERS Safety Report 4580109-2 (Version None)
Quarter: 2005Q1

REPORT INFORMATION
  Report Type: 
  Country: None (occurrence: None)
  Receive Date: 20050210
  Receipt Date: 20050120
  Transmission Date: 20050727
  Serious: Yes (Death, Other)
  Sender: FDA-Public Use
  Company Number: 2005-00098

PATIENT
  Age: 51 Year
  Sex: Male

DRUGS (3)
  1. VELCADE [Suspect]
     Indication: MULTIPLE MYELOMA
     Dates: start: 20040614, end: 20041122
  2. ADRIAMYCIN PFS [Suspect]
     Indication: MULTIPLE MYELOMA
     Dates: start: 20041122, end: 20041122
  3. DEXAMETHASONE [Suspect]
     Indication: MULTIPLE MYELOMA
     Dates: start: 20041122, end: 20041122

REACTIONS (3)
  - MONOCLONAL IMMUNOGLOBULIN PRESENT [None]
  - NEUROPATHY PERIPHERAL [None]
  - SEPSIS [None]
